FAERS Safety Report 23688018 (Version 1)
Quarter: 2024Q1

REPORT INFORMATION
  Report Type: Spontaneous
  Country: US (occurrence: None)
  Receive Date: 20240329
  Receipt Date: 20240329
  Transmission Date: 20240410
  Serious: Yes (Hospitalization)
  Sender: FDA-Public Use
  Company Number: None

PATIENT
  Age: 62 Year
  Sex: Female

DRUGS (21)
  1. BENLYSTA [Suspect]
     Active Substance: BELIMUMAB
     Indication: Systemic lupus erythematosus
     Dosage: FREQUENCY : WEEKLY;?
     Route: 058
     Dates: start: 20231027
  2. WARFARIN SDD 5MG TABLETS (PEACH) [Concomitant]
  3. PREDNISONE [Concomitant]
     Active Substance: PREDNISONE
  4. LYRICA 75MG CAPSULES [Concomitant]
  5. AMLODIPINE BESYLATE [Concomitant]
     Active Substance: AMLODIPINE BESYLATE
  6. PLAQUENIL 200MG TABLETS [Concomitant]
  7. CALCITRIOL 0.25MCG CAPSULES [Concomitant]
  8. GABAPENTIN [Concomitant]
     Active Substance: GABAPENTIN
  9. XARELTO [Concomitant]
     Active Substance: RIVAROXABAN
  10. CLONIDINE [Concomitant]
     Active Substance: CLONIDINE
  11. DESYREL 100MG TABLETS [Concomitant]
  12. FLEXERIL 10MG TABLETS [Concomitant]
  13. LEXAPRO 10MG TABLETS [Concomitant]
  14. POTASSIUM CHLORIDE 20MEQ ER TABLETS [Concomitant]
  15. PROTONIX 20MG TABLETS [Concomitant]
  16. REMERON 15MG TABLETS [Concomitant]
  17. VITAMIN D 1,000IU SOFTGELS [Concomitant]
  18. ACETAMINOPHEN/COD #.3 (300/30MG) TAB [Concomitant]
  19. AMBIEN [Concomitant]
     Active Substance: ZOLPIDEM TARTRATE
  20. LEVOTHYROXINE 0.05MG (150MCG) TAB [Concomitant]
  21. RESTASIS [Concomitant]
     Active Substance: CYCLOSPORINE

REACTIONS (1)
  - Thrombosis [None]

NARRATIVE: CASE EVENT DATE: 20240325
